FAERS Safety Report 5332759-3 (Version None)
Quarter: 2007Q2

REPORT INFORMATION
  Report Type: 
  Country: None (occurrence: None)
  Receive Date: 20070523
  Receipt Date: 20070511
  Transmission Date: 20071010
  Serious: Yes (Other)
  Sender: FDA-Public Use
  Company Number: US-PFIZER INC-2007039318

PATIENT
  Sex: Male
  Weight: 81.6 kg

DRUGS (3)
  1. CHANTIX [Suspect]
     Indication: SMOKING CESSATION THERAPY
     Dates: start: 20070414, end: 20070423
  2. PAXIL [Concomitant]
  3. COUMADIN [Concomitant]
     Dosage: DAILY DOSE:5MG

REACTIONS (10)
  - DEPRESSED LEVEL OF CONSCIOUSNESS [None]
  - HALLUCINATION, TACTILE [None]
  - HALLUCINATION, VISUAL [None]
  - HYPERSOMNIA [None]
  - HYPOCOAGULABLE STATE [None]
  - MALAISE [None]
  - OCULAR HYPERAEMIA [None]
  - SOCIAL PHOBIA [None]
  - TREMOR [None]
  - WEIGHT DECREASED [None]
